FAERS Safety Report 8123075-5 (Version None)
Quarter: 2012Q1

REPORT INFORMATION
  Report Type: 
  Country: None (occurrence: None)
  Receive Date: 20120208
  Receipt Date: 20120203
  Transmission Date: 20120608
  Serious: Yes (Death, Hospitalization, Other)
  Sender: FDA-Public Use
  Company Number: DE-PFIZER INC-DE-WYE-H11474009

PATIENT
  Age: 94 Year
  Sex: Female

DRUGS (14)
  1. BAYPEN [Suspect]
     Dosage: 2.0 G, 1X/DAY
     Route: 042
     Dates: start: 20090713, end: 20090724
  2. NOVALGIN [Concomitant]
     Dosage: UNK
     Route: 048
     Dates: start: 20090704, end: 20090709
  3. OLMESARTAN MEDOXOMIL [Concomitant]
     Dosage: UNK
     Route: 048
     Dates: start: 20030101, end: 20090702
  4. PANTOPRAZOLE [Suspect]
     Dosage: 20.0 MG, 1X/DAY
     Route: 048
     Dates: start: 20090703, end: 20090713
  5. ENOXAPARIN SODIUM [Concomitant]
  6. CITALOPRAM HYDROBROMIDE [Suspect]
     Dosage: 10.0 MG, 1X/DAY
     Route: 048
     Dates: start: 20090714, end: 20090722
  7. ENOXAPARIN SODIUM [Concomitant]
     Route: 065
  8. ARCOXIA [Suspect]
     Dosage: 90.0 MG, 1X/DAY
     Route: 048
     Dates: start: 20090706, end: 20090713
  9. ENOXAPARIN SODIUM [Concomitant]
     Dosage: UNK
     Route: 058
     Dates: start: 20090704, end: 20090710
  10. NOVALGIN [Concomitant]
     Dosage: UNK
     Route: 048
     Dates: start: 20090716, end: 20090716
  11. OLMESARTAN MEDOXOMIL [Concomitant]
     Dosage: UNK
     Route: 048
     Dates: start: 20090703, end: 20090722
  12. ACETAMINOPHEN [Suspect]
     Dosage: 500 MG, 3X/DAY
     Route: 048
     Dates: start: 20090703, end: 20090713
  13. NITROGLYCERIN [Concomitant]
     Dosage: UNK
     Route: 055
     Dates: start: 20090707, end: 20090707
  14. ENOXAPARIN SODIUM [Concomitant]
     Dosage: UNK
     Route: 058
     Dates: start: 20090704, end: 20090710

REACTIONS (3)
  - DEATH [None]
  - HEPATITIS ACUTE [None]
  - SPHINCTER OF ODDI DYSFUNCTION [None]
